FAERS Safety Report 13822942 (Version 5)
Quarter: 2017Q4

REPORT INFORMATION
  Report Type: Report from Study
  Country: US (occurrence: US)
  Receive Date: 20170801
  Receipt Date: 20171204
  Transmission Date: 20180320
  Serious: Yes (Other)
  Sender: FDA-Public Use
  Company Number: US-GILEAD-2017-0286056

PATIENT
  Age: 72 Year
  Sex: Female

DRUGS (3)
  1. XARELTO [Concomitant]
     Active Substance: RIVAROXABAN
  2. AMBRISENTAN [Suspect]
     Active Substance: AMBRISENTAN
     Indication: PRODUCT USED FOR UNKNOWN INDICATION
     Dosage: 5 MG, QD
     Route: 065
     Dates: start: 20160113
  3. ORENITRAM [Concomitant]
     Active Substance: TREPROSTINIL

REACTIONS (19)
  - Nephrolithiasis [Not Recovered/Not Resolved]
  - Lymphoedema [Unknown]
  - Gout [Unknown]
  - Dehydration [Unknown]
  - Dysphagia [Not Recovered/Not Resolved]
  - Hernia [Unknown]
  - Peripheral swelling [Not Recovered/Not Resolved]
  - Epistaxis [Not Recovered/Not Resolved]
  - Scleroderma [Not Recovered/Not Resolved]
  - Dyspepsia [Not Recovered/Not Resolved]
  - Retinal disorder [Unknown]
  - Fall [Recovered/Resolved]
  - Foreign body in respiratory tract [Not Recovered/Not Resolved]
  - Burning sensation [Not Recovered/Not Resolved]
  - Haemorrhage [Not Recovered/Not Resolved]
  - Gastroenteritis viral [Unknown]
  - Fall [Unknown]
  - Anaemia [Not Recovered/Not Resolved]
  - Dizziness [Not Recovered/Not Resolved]

NARRATIVE: CASE EVENT DATE: 201703
